FAERS Safety Report 4299294-5 (Version None)
Quarter: 2004Q1

REPORT INFORMATION
  Report Type: 
  Country: None (occurrence: None)
  Receive Date: 20040217
  Receipt Date: 20040204
  Transmission Date: 20041129
  Serious: Yes (Hospitalization, Other)
  Sender: FDA-Public Use
  Company Number: 2004007513

PATIENT
  Age: 55 Year
  Sex: Male
  Weight: 104.3273 kg

DRUGS (9)
  1. VIAGRA [Suspect]
     Indication: ERECTILE DYSFUNCTION
     Dosage: 25 MG (PRN), ORAL
     Route: 048
  2. METOPROLOL SUCCINATE [Suspect]
     Indication: ILL-DEFINED DISORDER
     Dosage: 200 MG (DAILY), ORAL
     Route: 048
     Dates: start: 20020101
  3. CARICA PAPAYA (CARICA PAPAYA) [Suspect]
     Indication: ILL-DEFINED DISORDER
  4. COLCHICINE (COLCHICINE) [Concomitant]
  5. METFORMIN HCL [Concomitant]
  6. GLYBURIDE [Concomitant]
  7. ACETYLSALICYLIC ACID SRT [Concomitant]
  8. MULTIVITAMIN [Concomitant]
  9. NITROGLYCERIN [Concomitant]

REACTIONS (6)
  - DRUG EFFECT DECREASED [None]
  - DRUG INTERACTION POTENTIATION [None]
  - ERECTILE DYSFUNCTION [None]
  - FOOD INTERACTION [None]
  - HOARSENESS [None]
  - TRIPLE VESSEL BYPASS GRAFT [None]
